FAERS Safety Report 14457231 (Version 8)
Quarter: 2018Q2

REPORT INFORMATION
  Report Type: Spontaneous
  Country: SK (occurrence: SK)
  Receive Date: 20180130
  Receipt Date: 20180419
  Transmission Date: 20180711
  Serious: Yes (Death, Other)
  Sender: FDA-Public Use
  Company Number: SK-ELI_LILLY_AND_COMPANY-SK201801011114

PATIENT
  Age: 71 Year
  Sex: Male
  Weight: 75 kg

DRUGS (9)
  1. 5-FLUOROURACIL                     /00098801/ [Suspect]
     Active Substance: FLUOROURACIL
     Indication: PANCREATIC CARCINOMA METASTATIC
     Dosage: 425 MG/M2, CYCLICAL
     Route: 042
  2. GEMCITABINE HYDROCHLORIDE. [Suspect]
     Active Substance: GEMCITABINE HYDROCHLORIDE
     Indication: PANCREATIC CARCINOMA METASTATIC
     Dosage: 1000 MG/M2, CYCLICAL
     Route: 042
     Dates: start: 20161220, end: 20170201
  3. PACLITAX NAB [Suspect]
     Active Substance: PACLITAXEL
     Dosage: 125 MG/M2, CYCLICAL
     Route: 042
     Dates: start: 201702, end: 201705
  4. PACLITAX NAB [Suspect]
     Active Substance: PACLITAXEL
     Indication: PANCREATIC CARCINOMA METASTATIC
     Dosage: 125 MG/M2, CYCLICAL
     Route: 042
     Dates: start: 20161220, end: 20170201
  5. ABRAXANE [Suspect]
     Active Substance: PACLITAXEL
     Dosage: 125 MG/M2, CYCLICAL
     Route: 041
     Dates: start: 201702, end: 201705
  6. GEMCITABINE HYDROCHLORIDE. [Suspect]
     Active Substance: GEMCITABINE HYDROCHLORIDE
     Dosage: 1000 MG/M2, CYCLICAL
     Route: 042
     Dates: start: 20170201, end: 20170501
  7. LEUCOVORIN CALCIUM. [Suspect]
     Active Substance: LEUCOVORIN CALCIUM
     Indication: PANCREATIC CARCINOMA METASTATIC
     Dosage: UNK, UNKNOWN
     Route: 065
  8. ABRAXANE [Suspect]
     Active Substance: PACLITAXEL
     Indication: PANCREATIC CARCINOMA METASTATIC
     Dosage: 125 MG/M2, CYCLICAL
     Route: 041
     Dates: start: 20161220
  9. INSULIN [Concomitant]
     Active Substance: INSULIN NOS
     Indication: DIABETES MELLITUS
     Dosage: UNK, UNKNOWN
     Route: 065

REACTIONS (15)
  - Constipation [Fatal]
  - Oedema peripheral [Fatal]
  - Hepatotoxicity [Fatal]
  - Urinary tract infection bacterial [Unknown]
  - Thrombocytopenia [Fatal]
  - Dysuria [Fatal]
  - Ascites [Fatal]
  - Dyspnoea [Fatal]
  - Bacteriuria [Fatal]
  - Abdominal pain [Fatal]
  - Off label use [Unknown]
  - Leukocyturia [Fatal]
  - Venous thrombosis [Fatal]
  - Pancreatic carcinoma metastatic [Fatal]
  - Malignant neoplasm progression [Fatal]

NARRATIVE: CASE EVENT DATE: 20170201
